FAERS Safety Report 4825117-9 (Version None)
Quarter: 2005Q4

REPORT INFORMATION
  Report Type: 
  Country: None (occurrence: None)
  Receive Date: 20051109
  Receipt Date: 20051109
  Transmission Date: 20060501
  Serious: Yes (Life-Threatening, Hospitalization)
  Sender: FDA-Public Use
  Company Number: None

PATIENT
  Age: 20 Year
  Sex: Female
  Weight: 69.8539 kg

DRUGS (5)
  1. PREDNISONE [Suspect]
     Indication: SINUSITIS
     Dosage: 50MG - 3 DAYS, 40MG - 3 DAYS, 30MG 3 DAYS, 20MG - 3 DAYS, 10MG - 3 DAYS
     Dates: start: 20031230, end: 20040108
  2. BIAXIN [Concomitant]
  3. DURATUSS [Concomitant]
  4. NASONEX [Concomitant]
  5. MMR SHOT [Concomitant]

REACTIONS (22)
  - ABDOMINAL DISTENSION [None]
  - BLOOD PRESSURE INCREASED [None]
  - CONSTIPATION [None]
  - CYST RUPTURE [None]
  - DRUG PRESCRIBING ERROR [None]
  - DYSPNOEA [None]
  - EPSTEIN-BARR VIRUS INFECTION [None]
  - FEELING ABNORMAL [None]
  - FEELING HOT [None]
  - FOOD CRAVING [None]
  - HEART RATE INCREASED [None]
  - HYPERTROPHY BREAST [None]
  - INCREASED APPETITE [None]
  - INSOMNIA [None]
  - MUSCLE SPASMS [None]
  - ORAL INTAKE REDUCED [None]
  - PAIN [None]
  - PALPITATIONS [None]
  - PARAESTHESIA [None]
  - PRURITUS [None]
  - THROAT TIGHTNESS [None]
  - VOMITING [None]
